FAERS Safety Report 16322172 (Version 1)
Quarter: 2019Q2

REPORT INFORMATION
  Report Type: Report from Study
  Country: BY (occurrence: BY)
  Receive Date: 20190516
  Receipt Date: 20190516
  Transmission Date: 20190711
  Serious: Yes (Other)
  Sender: FDA-Public Use
  Company Number: BY-JNJFOC-20190510174

PATIENT
  Sex: Female

DRUGS (3)
  1. CARBAMAZEPINE. [Suspect]
     Active Substance: CARBAMAZEPINE
     Indication: EPILEPSY
     Route: 065
  2. TOPIRAMATE. [Suspect]
     Active Substance: TOPIRAMATE
     Indication: EPILEPSY
     Route: 065
  3. LAMOTRIGINE. [Suspect]
     Active Substance: LAMOTRIGINE
     Indication: EPILEPSY
     Route: 065

REACTIONS (14)
  - Vaginal laceration [Unknown]
  - Placenta praevia [Unknown]
  - Exposure during pregnancy [Unknown]
  - Pre-eclampsia [Unknown]
  - Premature delivery [Unknown]
  - Uterine hypotonus [Unknown]
  - Placental insufficiency [Unknown]
  - Anaemia [Unknown]
  - Treatment noncompliance [Unknown]
  - Abortion threatened [Unknown]
  - Threatened labour [Unknown]
  - Polyhydramnios [Unknown]
  - Premature rupture of membranes [Unknown]
  - Postpartum haemorrhage [Unknown]
